FAERS Safety Report 7599436-X (Version None)
Quarter: 2011Q3

REPORT INFORMATION
  Report Type: 
  Country: None (occurrence: None)
  Receive Date: 20110711
  Receipt Date: 20110705
  Transmission Date: 20111222
  Serious: Yes (Hospitalization)
  Sender: FDA-Public Use
  Company Number: US-BAYER-2011-058393

PATIENT
  Sex: Female

DRUGS (1)
  1. YAZ [Suspect]
     Indication: PRODUCT USED FOR UNKNOWN INDICATION
     Dosage: UNK
     Dates: start: 20080201

REACTIONS (6)
  - GALLBLADDER DISORDER [None]
  - ANHEDONIA [None]
  - PAIN [None]
  - INJURY [None]
  - ANXIETY [None]
  - PANCREATITIS [None]
